FAERS Safety Report 11440128 (Version 1)
Quarter: 2015Q3

REPORT INFORMATION
  Report Type: Spontaneous
  Country: US (occurrence: US)
  Receive Date: 20150901
  Receipt Date: 20150901
  Transmission Date: 20151125
  Serious: Yes (Other)
  Sender: FDA-Public Use
  Company Number: US-ROCHE-1152784

PATIENT
  Age: 44 Year
  Sex: Female
  Weight: 75.36 kg

DRUGS (4)
  1. RIBAVIRIN. [Suspect]
     Active Substance: RIBAVIRIN
     Dosage: EVENING DOSE
     Route: 048
     Dates: start: 20120629, end: 20121026
  2. INCIVEK [Suspect]
     Active Substance: TELAPREVIR
     Indication: HEPATITIS C
     Route: 048
     Dates: start: 20120702
  3. PEGASYS [Suspect]
     Active Substance: PEGINTERFERON ALFA-2A
     Indication: HEPATITIS C
     Route: 058
     Dates: start: 20120629, end: 20121026
  4. RIBAVIRIN. [Suspect]
     Active Substance: RIBAVIRIN
     Indication: HEPATITIS C
     Dosage: MORNING DOSE
     Route: 048
     Dates: start: 20120629, end: 20121026

REACTIONS (4)
  - Rash [Recovered/Resolved]
  - Pallor [Unknown]
  - Oedema [Unknown]
  - Rash macular [Unknown]

NARRATIVE: CASE EVENT DATE: 20120701
